FAERS Safety Report 4768412-4 (Version None)
Quarter: 2005Q3

REPORT INFORMATION
  Report Type: 
  Country: None (occurrence: None)
  Receive Date: 20050906
  Receipt Date: 20050718
  Transmission Date: 20060218
  Serious: No
  Sender: FDA-Public Use
  Company Number: 2005-BP-12076BP

PATIENT
  Sex: Female

DRUGS (1)
  1. SPIRIVA [Suspect]
     Indication: ASTHMA
     Dosage: 18 MCG (18 MCG,QD), IH
     Route: 055
     Dates: end: 20050717

REACTIONS (5)
  - INCORRECT ROUTE OF DRUG ADMINISTRATION [None]
  - MENSTRUAL DISORDER [None]
  - MUSCLE SPASMS [None]
  - SKIN DISORDER [None]
  - SKIN TIGHTNESS [None]
